FAERS Safety Report 15813674 (Version 1)
Quarter: 2019Q1

REPORT INFORMATION
  Report Type: Spontaneous
  Country: US (occurrence: US)
  Receive Date: 20190111
  Receipt Date: 20190111
  Transmission Date: 20190417
  Serious: Yes (Death)
  Sender: FDA-Public Use
  Company Number: US-INSYS THERAPEUTICS, INC-INS201901-000004

PATIENT
  Age: 31 Year
  Sex: Female

DRUGS (5)
  1. COCAINE [Suspect]
     Active Substance: COCAINE
  2. BENZOYLECGONINE [Suspect]
     Active Substance: BENZOYLECGONINE
  3. NORFENTANYL [Suspect]
     Active Substance: NORFENTANYL
  4. FENTANYL. [Suspect]
     Active Substance: FENTANYL
     Indication: PRODUCT USED FOR UNKNOWN INDICATION
  5. CYCLOPROPYLFENTANYL [Suspect]
     Active Substance: CYCLOPROPYLFENTANYL

REACTIONS (1)
  - Death [Fatal]

NARRATIVE: CASE EVENT DATE: 2017
